FAERS Safety Report 10071147 (Version 2)
Quarter: 2014Q2

REPORT INFORMATION
  Report Type: Spontaneous
  Country: US (occurrence: US)
  Receive Date: 20140410
  Receipt Date: 20140418
  Transmission Date: 20141212
  Serious: Yes (Other)
  Sender: FDA-Public Use
  Company Number: US-PFIZER INC-2014097214

PATIENT
  Age: 64 Year
  Sex: Male
  Weight: 77.1 kg

DRUGS (1)
  1. VIAGRA [Suspect]
     Indication: ERECTILE DYSFUNCTION
     Dosage: 100 MG, UNK

REACTIONS (7)
  - Syncope [Recovered/Resolved]
  - Fall [Unknown]
  - Joint dislocation [Unknown]
  - Facial bones fracture [Unknown]
  - Loss of consciousness [Unknown]
  - Tachycardia [Unknown]
  - Flushing [Unknown]
